FAERS Safety Report 16243460 (Version 2)
Quarter: 2019Q3

REPORT INFORMATION
  Report Type: Spontaneous
  Country: US (occurrence: US)
  Receive Date: 20190426
  Receipt Date: 20190826
  Transmission Date: 20191004
  Serious: No
  Sender: FDA-Public Use
  Company Number: US-MYLANLABS-2019M1033966

PATIENT
  Sex: Female

DRUGS (2)
  1. ENTACAPONE MYLAN [Suspect]
     Active Substance: ENTACAPONE
     Dosage: 200 MILLIGRAM, QD
     Route: 048
  2. ENTACAPONE MYLAN [Suspect]
     Active Substance: ENTACAPONE
     Dosage: 200 MILLIGRAM, BID
     Route: 048

REACTIONS (1)
  - Diarrhoea [Not Recovered/Not Resolved]
